FAERS Safety Report 5376996-0 (Version None)
Quarter: 2007Q2

REPORT INFORMATION
  Report Type: 
  Country: None (occurrence: None)
  Receive Date: 20070628
  Receipt Date: 20070628
  Transmission Date: 20071010
  Serious: Yes (Other)
  Sender: FDA-Public Use
  Company Number: None

PATIENT
  Sex: Male
  Weight: 69.8539 kg

DRUGS (4)
  1. TOPAMAX [Suspect]
     Indication: MIGRAINE PROPHYLAXIS
     Dosage: 25 MG  25 QAM / 75 QPM PO
     Route: 048
     Dates: start: 20070215, end: 20070610
  2. PREVACID [Concomitant]
  3. FLUOXETINE [Concomitant]
  4. PROMETHAZINE [Concomitant]

REACTIONS (12)
  - ABDOMINAL PAIN [None]
  - ANOREXIA [None]
  - CONDITION AGGRAVATED [None]
  - DEPRESSION [None]
  - DIARRHOEA [None]
  - DYSPEPSIA [None]
  - FEAR [None]
  - HYPERCHLORAEMIA [None]
  - MOOD ALTERED [None]
  - NAUSEA [None]
  - TEMPERATURE INTOLERANCE [None]
  - WEIGHT DECREASED [None]
